FAERS Safety Report 16415793 (Version 1)
Quarter: 2019Q2

REPORT INFORMATION
  Report Type: Spontaneous
  Country: US (occurrence: US)
  Receive Date: 20190611
  Receipt Date: 20190611
  Transmission Date: 20190711
  Serious: Yes (Other)
  Sender: FDA-Public Use
  Company Number: US-JNJFOC-20190609551

PATIENT
  Sex: Female

DRUGS (1)
  1. REMICADE [Suspect]
     Active Substance: INFLIXIMAB
     Indication: PRODUCT USED FOR UNKNOWN INDICATION
     Route: 042

REACTIONS (6)
  - Dysgeusia [Unknown]
  - Photosensitivity reaction [Recovering/Resolving]
  - Urticaria [Recovering/Resolving]
  - Stomatitis [Unknown]
  - Malaise [Recovering/Resolving]
  - Fatigue [Recovering/Resolving]
